FAERS Safety Report 25088590 (Version 2)
Quarter: 2025Q3

REPORT INFORMATION
  Report Type: Other
  Country: CA (occurrence: CA)
  Receive Date: 20250318
  Receipt Date: 20250703
  Transmission Date: 20251021
  Serious: Yes (Hospitalization, Other)
  Sender: Atnahs Healthcare
  Company Number: CA-ATNAHS-ATNAHS20250100702

PATIENT
  Age: 63 Year
  Sex: Male

DRUGS (96)
  1. KETOROLAC [Suspect]
     Active Substance: KETOROLAC TROMETHAMINE
     Indication: Product used for unknown indication
  2. KETOROLAC [Suspect]
     Active Substance: KETOROLAC TROMETHAMINE
  3. KETOROLAC [Suspect]
     Active Substance: KETOROLAC TROMETHAMINE
     Dosage: 10 MILLIGRAM, 3X/DAY
  4. ACETAMINOPHEN [Suspect]
     Active Substance: ACETAMINOPHEN
     Indication: Product used for unknown indication
  5. ADVAIR HFA [Suspect]
     Active Substance: FLUTICASONE PROPIONATE\SALMETEROL XINAFOATE
     Indication: Product used for unknown indication
     Dosage: 2 DOSAGE FORM, 2X/DAY
  6. ALBUTEROL SULFATE [Suspect]
     Active Substance: ALBUTEROL SULFATE
     Indication: Product used for unknown indication
  7. ALBUTEROL SULFATE [Suspect]
     Active Substance: ALBUTEROL SULFATE
     Dosage: 2 DOSAGE FORMS, 4 EVERY 1 DAY
  8. ALVESCO [Suspect]
     Active Substance: CICLESONIDE
     Indication: Product used for unknown indication
     Dosage: 2 DOSAGE FORMS, 2X/DAY
     Route: 065
  9. AMLODIPINE BESYLATE [Suspect]
     Active Substance: AMLODIPINE BESYLATE
     Indication: Product used for unknown indication
     Dosage: 2.5 MILLIGRAM, 1X/DAY
     Route: 065
  10. AMLODIPINE BESYLATE [Suspect]
     Active Substance: AMLODIPINE BESYLATE
     Dosage: 2.5 MILLIGRAM, 1X/MONTH
  11. FUROSEMIDE [Suspect]
     Active Substance: FUROSEMIDE
     Indication: Product used for unknown indication
     Dosage: 20 MILLIGRAM, 1X/DAY
  12. FUROSEMIDE [Suspect]
     Active Substance: FUROSEMIDE
     Dosage: 20 MILLIGRAM, 1X/DAY
  13. PREDNISONE [Suspect]
     Active Substance: PREDNISONE
     Indication: Product used for unknown indication
     Dosage: 50 MILLIGRAM, 1X/DAY
     Route: 065
  14. PREDNISONE [Suspect]
     Active Substance: PREDNISONE
     Dosage: 40 MILLIGRAM, 1X/DAY
     Route: 065
  15. PREDNISONE [Suspect]
     Active Substance: PREDNISONE
     Dosage: 5 MILLIGRAM, 1X/DAY
     Route: 065
  16. PREDNISONE [Suspect]
     Active Substance: PREDNISONE
     Dosage: 25 MILLIGRAM, 1X/DAY
  17. PREDNISONE [Suspect]
     Active Substance: PREDNISONE
     Dosage: 50 MILLIGRAM, 1X/DAY
  18. PREDNISONE [Suspect]
     Active Substance: PREDNISONE
     Dosage: 25 MILLIGRAM, 1X/DAY
     Route: 065
  19. PREDNISONE [Suspect]
     Active Substance: PREDNISONE
     Route: 065
  20. PREDNISONE [Suspect]
     Active Substance: PREDNISONE
     Dosage: 50 MILLIGRAM, 1X/DAY
     Route: 065
  21. PREDNISONE [Suspect]
     Active Substance: PREDNISONE
     Dosage: 50 MILLIGRAM, 1X/DAY
  22. ACETAMINOPHEN\TRAMADOL HYDROCHLORIDE [Suspect]
     Active Substance: ACETAMINOPHEN\TRAMADOL HYDROCHLORIDE
     Indication: Product used for unknown indication
  23. PERINDOPRIL ARGININE [Suspect]
     Active Substance: PERINDOPRIL ARGININE
     Indication: Product used for unknown indication
     Dosage: 8 MILLIGRAM, 1X/DAY
     Route: 065
  24. ATROVENT HFA [Suspect]
     Active Substance: IPRATROPIUM BROMIDE
     Indication: Product used for unknown indication
     Dosage: 20 MICROGRAM, 4X/DAY
  25. BISOPROLOL FUMARATE [Suspect]
     Active Substance: BISOPROLOL FUMARATE
     Indication: Product used for unknown indication
     Dosage: 2.5 MILLIGRAM, 1X/DAY
  26. BISOPROLOL FUMARATE [Suspect]
     Active Substance: BISOPROLOL FUMARATE
     Dosage: 0.25 DOSAGE FORMS, 1X/DAY
  27. BREO ELLIPTA [Suspect]
     Active Substance: FLUTICASONE FUROATE\VILANTEROL TRIFENATATE
     Indication: Product used for unknown indication
     Dosage: 1 DOSAGE FORMS, 1X/DAY
  28. BREO ELLIPTA [Suspect]
     Active Substance: FLUTICASONE FUROATE\VILANTEROL TRIFENATATE
     Dosage: 1 DOSAGE FORM, 1X/DAY
  29. INDAPAMIDE\PERINDOPRIL ERBUMINE [Suspect]
     Active Substance: INDAPAMIDE\PERINDOPRIL ERBUMINE
     Indication: Product used for unknown indication
     Dosage: 1 DOSAGE FORM, 1X/DAY
  30. INDAPAMIDE\PERINDOPRIL ERBUMINE [Suspect]
     Active Substance: INDAPAMIDE\PERINDOPRIL ERBUMINE
     Dosage: 2.5 MG, 1X/DAY
     Route: 065
  31. CYCLOBENZAPRINE [Suspect]
     Active Substance: CYCLOBENZAPRINE
     Indication: Product used for unknown indication
     Dosage: 10 MILLIGRAM, 3X/DAY
  32. CYCLOBENZAPRINE [Suspect]
     Active Substance: CYCLOBENZAPRINE
     Dosage: 2.5 MILLIGRAM, 1X/DAY
     Route: 065
  33. CYCLOBENZAPRINE [Suspect]
     Active Substance: CYCLOBENZAPRINE
     Route: 065
  34. CYCLOBENZAPRINE HYDROCHLORIDE\DICLOFENAC POTASSIUM [Suspect]
     Active Substance: CYCLOBENZAPRINE HYDROCHLORIDE\DICLOFENAC POTASSIUM
     Indication: Product used for unknown indication
  35. DOXYCYCLINE [Suspect]
     Active Substance: DOXYCYCLINE
     Indication: Product used for unknown indication
     Dosage: 100 MILLIGRAM, 2X/DAY
  36. DOXYCYCLINE [Suspect]
     Active Substance: DOXYCYCLINE
     Dosage: 100 MILLIGRAM, 2X/DAY CAPSULES
  37. DOXYCYCLINE HYCLATE [Suspect]
     Active Substance: DOXYCYCLINE HYCLATE
     Indication: Product used for unknown indication
     Dosage: 100 MILLIGRAM, CAPSULE
  38. DOXYCYCLINE HYCLATE [Suspect]
     Active Substance: DOXYCYCLINE HYCLATE
     Dosage: 100 MG, 2X/DAY
     Route: 065
  39. DOXYCYCLINE HYCLATE [Suspect]
     Active Substance: DOXYCYCLINE HYCLATE
     Route: 065
  40. ENTRESTO [Suspect]
     Active Substance: SACUBITRIL\VALSARTAN
     Indication: Product used for unknown indication
     Dosage: 1 DOSAGE FORMS, 2X/DAY
  41. ENTRESTO [Suspect]
     Active Substance: SACUBITRIL\VALSARTAN
     Dosage: 1 DOSAGE FORM, 2X/DAY
  42. FORMOTEROL [Suspect]
     Active Substance: FORMOTEROL
     Indication: Product used for unknown indication
  43. FORMOTEROL [Suspect]
     Active Substance: FORMOTEROL
     Dosage: 2.5 MG, 1X/DAY
  44. FUROSEMIDE [Suspect]
     Active Substance: FUROSEMIDE
     Indication: Product used for unknown indication
  45. FUROSEMIDE [Suspect]
     Active Substance: FUROSEMIDE
  46. FUROSEMIDE\POTASSIUM CHLORIDE [Suspect]
     Active Substance: FUROSEMIDE\POTASSIUM CHLORIDE
     Indication: Product used for unknown indication
  47. EPLERENONE [Suspect]
     Active Substance: EPLERENONE
     Indication: Product used for unknown indication
     Dosage: 50 MILLIGRAM, 1X/DAY
  48. EPLERENONE [Suspect]
     Active Substance: EPLERENONE
     Dosage: 50 MILLIGRAM, 1X/DAY
  49. EPLERENONE [Suspect]
     Active Substance: EPLERENONE
     Dosage: 50 MILLIGRAM, 1X/DAY
  50. EPLERENONE [Suspect]
     Active Substance: EPLERENONE
     Dosage: 50 MILLIGRAM, 1X/DAY
  51. INFLUENZA VIRUS VACCINE [Concomitant]
     Active Substance: INFLUENZA VIRUS VACCINE
     Indication: Prophylaxis
  52. INFLUENZA VIRUS VACCINE [Concomitant]
     Active Substance: INFLUENZA VIRUS VACCINE
     Dosage: 2.5 MG, 1X/DAY
     Route: 065
  53. IVABRADINE HYDROCHLORIDE [Suspect]
     Active Substance: IVABRADINE HYDROCHLORIDE
     Indication: Product used for unknown indication
     Dosage: 7.5 MILLIGRAM, 2X/DAY
  54. IVABRADINE HYDROCHLORIDE [Suspect]
     Active Substance: IVABRADINE HYDROCHLORIDE
     Dosage: 2.5 MG, 1X/DAY
     Route: 065
  55. IVABRADINE HYDROCHLORIDE [Suspect]
     Active Substance: IVABRADINE HYDROCHLORIDE
     Route: 065
  56. MEPOLIZUMAB [Suspect]
     Active Substance: MEPOLIZUMAB
     Indication: Asthma
     Dosage: 100 MILLIGRAM, 1X/MONTH
  57. MONTELUKAST SODIUM [Suspect]
     Active Substance: MONTELUKAST SODIUM
     Indication: Product used for unknown indication
     Dosage: 10 MILLIGRAM, 1X/DAY
  58. MONTELUKAST SODIUM [Suspect]
     Active Substance: MONTELUKAST SODIUM
     Dosage: 10 MILLIGRAM, 1X/DAY
  59. MONTELUKAST SODIUM [Suspect]
     Active Substance: MONTELUKAST SODIUM
     Dosage: 10 MILLIGRAM, 1X/DAY
  60. MONTELUKAST SODIUM [Suspect]
     Active Substance: MONTELUKAST SODIUM
     Dosage: 10 MILLIGRAM, 1X/DAY
  61. MONTELUKAST SODIUM [Suspect]
     Active Substance: MONTELUKAST SODIUM
     Dosage: 10 MILLIGRAM, 1X/DAY
  62. MONTELUKAST SODIUM [Suspect]
     Active Substance: MONTELUKAST SODIUM
     Dosage: 50 MG, 1X/DAY
  63. MONTELUKAST SODIUM [Suspect]
     Active Substance: MONTELUKAST SODIUM
     Dosage: 50 MG, 1X/DAY
     Route: 065
  64. PERINDOPRIL [Suspect]
     Active Substance: PERINDOPRIL
     Indication: Product used for unknown indication
  65. PERINDOPRIL [Suspect]
     Active Substance: PERINDOPRIL
     Route: 065
  66. INDAPAMIDE\PERINDOPRIL [Suspect]
     Active Substance: INDAPAMIDE\PERINDOPRIL
     Indication: Product used for unknown indication
  67. AZITHROMYCIN ANHYDROUS [Suspect]
     Active Substance: AZITHROMYCIN ANHYDROUS
     Indication: Product used for unknown indication
  68. CARVEDILOL [Suspect]
     Active Substance: CARVEDILOL
     Indication: Product used for unknown indication
     Dosage: 6.25 MILLIGRAM, 2X/DAY
  69. CARVEDILOL [Suspect]
     Active Substance: CARVEDILOL
     Dosage: 2.5 MG, 1X/DAY
     Route: 065
  70. PREGABALIN [Suspect]
     Active Substance: PREGABALIN
     Indication: Product used for unknown indication
     Dosage: 50 MILLIGRAM, 2X/DAY
  71. PREGABALIN [Suspect]
     Active Substance: PREGABALIN
  72. ALBUTEROL SULFATE [Suspect]
     Active Substance: ALBUTEROL SULFATE
     Indication: Product used for unknown indication
  73. ALBUTEROL SULFATE [Suspect]
     Active Substance: ALBUTEROL SULFATE
     Dosage: 2.5 MG, 1X/DAY
     Route: 065
  74. GLYCOPYRROLATE [Suspect]
     Active Substance: GLYCOPYRROLATE
     Indication: Product used for unknown indication
     Dosage: 50 MICROGRAM, 1X/DAY
  75. GLYCOPYRROLATE [Suspect]
     Active Substance: GLYCOPYRROLATE
     Indication: Asthma
     Dosage: 1 DOSAGE FORM, 1X/DAY
  76. SINGULAIR [Suspect]
     Active Substance: MONTELUKAST SODIUM
     Indication: Product used for unknown indication
     Dosage: 10 MILLIGRAM, 1X/DAY
  77. SINGULAIR [Suspect]
     Active Substance: MONTELUKAST SODIUM
     Dosage: 2.5 MG, 1X/DAY
     Route: 065
  78. SPIRONOLACTONE [Suspect]
     Active Substance: SPIRONOLACTONE
     Indication: Product used for unknown indication
     Dosage: 12.5 MILLIGRAM, 1X/DAY
  79. SPIRONOLACTONE [Suspect]
     Active Substance: SPIRONOLACTONE
  80. TIOTROPIUM BROMIDE MONOHYDRATE [Suspect]
     Active Substance: TIOTROPIUM BROMIDE MONOHYDRATE
     Indication: Product used for unknown indication
     Dosage: 2 DOSAGE FORMS, 1X/DAY
  81. UMECLIDINIUM BROMIDE [Suspect]
     Active Substance: UMECLIDINIUM BROMIDE
     Indication: Product used for unknown indication
     Dosage: 1 DOSAGE FORMS, 1X/DAY
  82. UMECLIDINIUM BROMIDE [Suspect]
     Active Substance: UMECLIDINIUM BROMIDE
     Dosage: 2.5 MG, 1X/DAY
     Route: 065
  83. UMECLIDINIUM BROMIDE\VILANTEROL TRIFENATATE [Suspect]
     Active Substance: UMECLIDINIUM BROMIDE\VILANTEROL TRIFENATATE
     Indication: Product used for unknown indication
  84. VARENICLINE TARTRATE [Suspect]
     Active Substance: VARENICLINE TARTRATE
     Indication: Product used for unknown indication
  85. VARENICLINE TARTRATE [Suspect]
     Active Substance: VARENICLINE TARTRATE
     Dosage: 2.5 MG, 1X/DAY
     Route: 065
  86. VENTOLIN HFA [Suspect]
     Active Substance: ALBUTEROL SULFATE
     Indication: Product used for unknown indication
     Route: 065
  87. VENTOLIN HFA [Suspect]
     Active Substance: ALBUTEROL SULFATE
  88. ZENHALE [Suspect]
     Active Substance: FORMOTEROL FUMARATE\MOMETASONE FUROATE
     Indication: Product used for unknown indication
     Dosage: 2 DOSAGE FORMS, 2X/DAY
  89. ZENHALE [Suspect]
     Active Substance: FORMOTEROL FUMARATE\MOMETASONE FUROATE
  90. ALTHIAZIDE\SPIRONOLACTONE [Suspect]
     Active Substance: ALTHIAZIDE\SPIRONOLACTONE
     Indication: Product used for unknown indication
     Dosage: 2.5 MG, 1X/DAY
     Route: 065
  91. ACEBUTOLOL HYDROCHLORIDE [Suspect]
     Active Substance: ACEBUTOLOL HYDROCHLORIDE
     Indication: Product used for unknown indication
     Dosage: 2.5 MG, 1X/DAY
     Route: 065
  92. CYCLOBENZAPRINE [Suspect]
     Active Substance: CYCLOBENZAPRINE
     Indication: Product used for unknown indication
     Dosage: 2.5 MG, 1X/DAY
     Route: 065
  93. AZITHROMYCIN MONOHYDRATE [Suspect]
     Active Substance: AZITHROMYCIN MONOHYDRATE
     Indication: Product used for unknown indication
     Route: 065
  94. AZITHROMYCIN MONOHYDRATE [Suspect]
     Active Substance: AZITHROMYCIN MONOHYDRATE
     Dosage: 25 MILLIGRAM, 1X/DAY
     Route: 065
  95. FORMOTEROL FUMARATE [Suspect]
     Active Substance: FORMOTEROL FUMARATE
     Route: 065
  96. VILANTEROL TRIFENATATE [Suspect]
     Active Substance: VILANTEROL TRIFENATATE
     Route: 065

REACTIONS (14)
  - Asthma [Recovering/Resolving]
  - Bronchitis [Recovering/Resolving]
  - Cardiac disorder [Recovering/Resolving]
  - Ischaemic cardiomyopathy [Recovering/Resolving]
  - Dyspnoea [Recovering/Resolving]
  - Asthma-chronic obstructive pulmonary disease overlap syndrome [Recovering/Resolving]
  - Breath sounds abnormal [Recovering/Resolving]
  - Bronchial hyperreactivity [Recovering/Resolving]
  - Cardiomyopathy [Recovering/Resolving]
  - Drug intolerance [Recovering/Resolving]
  - Eosinophilia [Recovering/Resolving]
  - Obstructive airways disorder [Recovering/Resolving]
  - Pulmonary function test abnormal [Recovering/Resolving]
  - Drug ineffective [Recovering/Resolving]
